FAERS Safety Report 11539729 (Version 1)
Quarter: 2015Q3

REPORT INFORMATION
  Report Type: Spontaneous
  Country: US (occurrence: US)
  Receive Date: 20150923
  Receipt Date: 20150923
  Transmission Date: 20151125
  Serious: No
  Sender: FDA-Public Use
  Company Number: US-MYLANLABS-2015M1029212

PATIENT
  Sex: Female

DRUGS (1)
  1. CANDESARTAN CILEXETIL AND HYDROCHLOROTHIAZIDE TABLETS [Suspect]
     Active Substance: CANDESARTAN CILEXETIL\HYDROCHLOROTHIAZIDE
     Dosage: 32/12.5 MG, HS
     Route: 048
     Dates: start: 20141209

REACTIONS (1)
  - Headache [Not Recovered/Not Resolved]

NARRATIVE: CASE EVENT DATE: 20150826
